FAERS Safety Report 21780640 (Version 3)
Quarter: 2023Q2

REPORT INFORMATION
  Report Type: Spontaneous
  Country: JP (occurrence: JP)
  Receive Date: 20221227
  Receipt Date: 20230510
  Transmission Date: 20230721
  Serious: Yes (Hospitalization, Other)
  Sender: FDA-Public Use
  Company Number: JP-ABBVIE-4250168

PATIENT
  Age: 66 Year
  Sex: Female

DRUGS (1)
  1. GLECAPREVIR\PIBRENTASVIR [Suspect]
     Active Substance: GLECAPREVIR\PIBRENTASVIR
     Indication: Chronic hepatitis C
     Dosage: 3 TABLET
     Route: 048
     Dates: start: 20221209

REACTIONS (2)
  - Fall [Unknown]
  - Femur fracture [Unknown]

NARRATIVE: CASE EVENT DATE: 20221215
